FAERS Safety Report 25776751 (Version 1)
Quarter: 2025Q3

REPORT INFORMATION
  Report Type: Spontaneous
  Country: US (occurrence: US)
  Receive Date: 20250909
  Receipt Date: 20250909
  Transmission Date: 20251020
  Serious: No
  Sender: DOMPE FARMACEUTICI
  Company Number: US-FARMAPROD-202503-0913

PATIENT
  Age: 59 Year
  Sex: Female

DRUGS (16)
  1. OXERVATE [Suspect]
     Active Substance: CENEGERMIN-BKBJ
     Indication: Neurotrophic keratopathy
     Route: 047
     Dates: start: 20250315
  2. OXERVATE [Suspect]
     Active Substance: CENEGERMIN-BKBJ
  3. OXERVATE [Suspect]
     Active Substance: CENEGERMIN-BKBJ
  4. RESTASIS [Concomitant]
     Active Substance: CYCLOSPORINE
  5. VITAMIN D3 [Concomitant]
     Active Substance: CHOLECALCIFEROL
  6. VITAMIN B12 [Concomitant]
     Active Substance: CYANOCOBALAMIN
  7. CALCIUM [Concomitant]
     Active Substance: CALCIUM
  8. ZINC [Concomitant]
     Active Substance: ZINC
  9. VITAMIN C [Concomitant]
     Active Substance: ASCORBIC ACID
  10. MONTELUKAST SODIUM [Concomitant]
     Active Substance: MONTELUKAST SODIUM
  11. HERBALS\TURMERIC [Concomitant]
     Active Substance: HERBALS\TURMERIC
  12. GABAPENTIN [Concomitant]
     Active Substance: GABAPENTIN
  13. HYDROXYCHLOROQUINE SULFATE [Concomitant]
     Active Substance: HYDROXYCHLOROQUINE SULFATE
  14. OMEPRAZOLE [Concomitant]
     Active Substance: OMEPRAZOLE
  15. LEVOTHYROXINE SODIUM [Concomitant]
     Active Substance: LEVOTHYROXINE SODIUM
  16. CYMBALTA [Concomitant]
     Active Substance: DULOXETINE HYDROCHLORIDE

REACTIONS (7)
  - Dry eye [Unknown]
  - Hypersensitivity [Unknown]
  - Eyelid pain [Recovered/Resolved]
  - Eye pain [Not Recovered/Not Resolved]
  - Swelling of eyelid [Recovered/Resolved]
  - Headache [Unknown]
  - Eye irritation [Unknown]

NARRATIVE: CASE EVENT DATE: 20250430
